FAERS Safety Report 5034844-2 (Version None)
Quarter: 2006Q2

REPORT INFORMATION
  Report Type: 
  Country: None (occurrence: None)
  Receive Date: 20060627
  Receipt Date: 20050901
  Transmission Date: 20061013
  Serious: Yes (Hospitalization, Other)
  Sender: FDA-Public Use
  Company Number: PHNU2005DE03031

PATIENT
  Age: 72 Year
  Sex: Female
  Weight: 70 kg

DRUGS (5)
  1. TAMOXIFEN [Concomitant]
     Dosage: 30 MG, UNK
     Route: 065
     Dates: end: 20031201
  2. ZOMETA [Suspect]
     Indication: METASTASES TO BONE
     Dosage: 4 MG, QMO
     Route: 042
     Dates: start: 20050501, end: 20050901
  3. LETROZOLE [Concomitant]
     Dosage: 2.5 MG, QD
     Route: 048
     Dates: start: 20031201
  4. AREDIA [Suspect]
     Indication: METASTASES TO BONE
     Dosage: 90 MG, QMO
     Route: 042
     Dates: start: 20011101, end: 20050401
  5. AREDIA [Suspect]
     Dosage: 60 MG, TIW
     Route: 042
     Dates: start: 20001001, end: 20011001

REACTIONS (10)
  - ANAESTHESIA [None]
  - BONE TRIMMING [None]
  - DENTAL TREATMENT [None]
  - HYPERMETABOLISM [None]
  - OSTEOMYELITIS [None]
  - OSTEOMYELITIS ACUTE [None]
  - OSTEONECROSIS [None]
  - PERIODONTITIS [None]
  - PRIMARY SEQUESTRUM [None]
  - STREPTOCOCCAL INFECTION [None]
